FAERS Safety Report 7645429-3 (Version None)
Quarter: 2011Q3

REPORT INFORMATION
  Report Type: 
  Country: None (occurrence: None)
  Receive Date: 20110729
  Receipt Date: 20090626
  Transmission Date: 20111222
  Serious: Yes (Other)
  Sender: FDA-Public Use
  Company Number: US-BAYER-200920281NA

PATIENT
  Age: 85 Year
  Sex: Female
  Weight: 67.727 kg

DRUGS (23)
  1. LEVOTHYROXINE SODIUM [Concomitant]
  2. EPOGEN [Concomitant]
  3. HEPARIN [Concomitant]
  4. LISINOPRIL [Concomitant]
  5. LOVASTATIN [Concomitant]
  6. MAGNEVIST [Suspect]
     Indication: NUCLEAR MAGNETIC RESONANCE IMAGING
     Route: 042
     Dates: start: 20050104, end: 20050104
  7. GADOLINIUM IN UNSPECIFIED DRUG [Suspect]
     Indication: NUCLEAR MAGNETIC RESONANCE IMAGING
     Dosage: 20 ML, ONCE
     Route: 042
     Dates: start: 20060201, end: 20060201
  8. TAMOXIFEN CITRATE [Concomitant]
     Dates: start: 20080201
  9. PHOSLO [Concomitant]
  10. DILTIAZEM [Concomitant]
  11. DARBEPOETIN ALFA [Concomitant]
  12. NEPHROVITE [VIT C,VIT H,B5,B12,B9,B3,B6,B2,B1 HCL] [Concomitant]
  13. SIMVASTATIN [Concomitant]
  14. FERROUS SULFATE TAB [Concomitant]
  15. FOSRENOL [Concomitant]
  16. MULTIHANCE [Suspect]
     Indication: NUCLEAR MAGNETIC RESONANCE IMAGING ABDOMINAL
     Route: 042
     Dates: start: 20060324, end: 20060324
  17. MAGNEVIST [Suspect]
     Indication: NUCLEAR MAGNETIC RESONANCE IMAGING BRAIN
     Route: 042
     Dates: start: 20060208, end: 20060208
  18. ARANESP [Concomitant]
     Dosage: 300 ?G Q WEEK
     Route: 058
  19. METOPROLOL TARTRATE [Concomitant]
  20. HYDRALAZINE HCL [Concomitant]
  21. MAGNEVIST [Suspect]
     Indication: ANGIOGRAM
  22. TRENTAL [Concomitant]
  23. OMEPRAZOLE [Concomitant]

REACTIONS (18)
  - NEPHROGENIC SYSTEMIC FIBROSIS [None]
  - SKIN PLAQUE [None]
  - ASTHENIA [None]
  - BACK PAIN [None]
  - HYPOAESTHESIA [None]
  - BALANCE DISORDER [None]
  - EXERCISE TOLERANCE DECREASED [None]
  - PAIN IN EXTREMITY [None]
  - MUSCULAR WEAKNESS [None]
  - SKIN EXFOLIATION [None]
  - SKIN DISORDER [None]
  - SKIN INDURATION [None]
  - DRY SKIN [None]
  - PRURITUS GENERALISED [None]
  - MUSCULOSKELETAL STIFFNESS [None]
  - OEDEMA [None]
  - PAIN [None]
  - GAIT DISTURBANCE [None]
